FAERS Safety Report 20245600 (Version 1)
Quarter: 2021Q4

REPORT INFORMATION
  Report Type: Spontaneous
  Country: US (occurrence: US)
  Receive Date: 20211229
  Receipt Date: 20211229
  Transmission Date: 20220304
  Serious: No
  Sender: FDA-Public Use
  Company Number: US-GSKCCFUS-Case-01252705_AE-73328

PATIENT
  Sex: Female

DRUGS (2)
  1. ANORO ELLIPTA [Suspect]
     Active Substance: UMECLIDINIUM BROMIDE\VILANTEROL TRIFENATATE
     Indication: Product used for unknown indication
     Dosage: UNK
     Route: 055
  2. TRELEGY ELLIPTA [Suspect]
     Active Substance: FLUTICASONE FUROATE\UMECLIDINIUM BROMIDE\VILANTEROL TRIFENATATE
     Indication: Product used for unknown indication
     Dosage: UNK
     Route: 055

REACTIONS (6)
  - Candida infection [Recovered/Resolved]
  - Dizziness [Recovered/Resolved]
  - Productive cough [Recovered/Resolved]
  - Sputum discoloured [Recovered/Resolved]
  - Nasopharyngitis [Recovered/Resolved]
  - Therapeutic product effect incomplete [Unknown]
